FAERS Safety Report 22624534 (Version 1)
Quarter: 2023Q2

REPORT INFORMATION
  Report Type: Spontaneous
  Country: FR (occurrence: FR)
  Receive Date: 20230621
  Receipt Date: 20230621
  Transmission Date: 20230722
  Serious: Yes (Hospitalization)
  Sender: FDA-Public Use
  Company Number: None

PATIENT
  Age: 82 Year
  Sex: Female
  Weight: 45.2 kg

DRUGS (1)
  1. AMIODARONE [Suspect]
     Active Substance: AMIODARONE
     Indication: Atrial fibrillation
     Dosage: 200 MILLIGRAM, QD
     Route: 048
     Dates: start: 2019, end: 202302

REACTIONS (4)
  - Hyponatraemia [Recovered/Resolved]
  - Mixed liver injury [Recovering/Resolving]
  - Bradycardia [Recovering/Resolving]
  - Atrioventricular block [Recovering/Resolving]

NARRATIVE: CASE EVENT DATE: 20230201
